FAERS Safety Report 15715062 (Version 1)
Quarter: 2018Q4

REPORT INFORMATION
  Report Type: Spontaneous
  Country: DE (occurrence: DE)
  Receive Date: 20181212
  Receipt Date: 20181212
  Transmission Date: 20190205
  Serious: Yes (Hospitalization, Congenital Anomaly, Other)
  Sender: FDA-Public Use
  Company Number: PHHY2018DE177395

PATIENT
  Sex: Male

DRUGS (1)
  1. PARACETAMOL [Suspect]
     Active Substance: ACETAMINOPHEN
     Indication: FOETAL EXPOSURE DURING PREGNANCY
     Route: 064

REACTIONS (12)
  - Right ventricular dysfunction [Recovering/Resolving]
  - Right ventricular dilatation [Recovering/Resolving]
  - Foetal exposure during pregnancy [Unknown]
  - Cardiac septal hypertrophy [Recovering/Resolving]
  - Cyanosis [Recovering/Resolving]
  - Ductus arteriosus premature closure [Unknown]
  - Right ventricular hypertrophy [Recovering/Resolving]
  - Pericardial effusion [Recovered/Resolved]
  - Cardiomegaly [Recovering/Resolving]
  - Tricuspid valve incompetence [Recovering/Resolving]
  - Congenital cardiovascular anomaly [Not Recovered/Not Resolved]
  - Oxygen saturation decreased [Recovered/Resolved]
